FAERS Safety Report 8504389-3 (Version None)
Quarter: 2012Q3

REPORT INFORMATION
  Report Type: 
  Country: None (occurrence: None)
  Receive Date: 20120711
  Receipt Date: 20120706
  Transmission Date: 20120928
  Serious: No
  Sender: FDA-Public Use
  Company Number: US-PFIZER INC-2012148261

PATIENT
  Sex: Female

DRUGS (3)
  1. CADUET [Suspect]
     Indication: BLOOD PRESSURE
     Dosage: UNK
  2. CADUET [Suspect]
     Indication: BLOOD CHOLESTEROL
  3. NORVASC [Suspect]
     Dosage: UNK

REACTIONS (1)
  - THYROID DISORDER [None]
